FAERS Safety Report 5928327-2 (Version None)
Quarter: 2008Q4

REPORT INFORMATION
  Report Type: 
  Country: None (occurrence: None)
  Receive Date: 20081023
  Receipt Date: 20081017
  Transmission Date: 20090506
  Serious: Yes (Life-Threatening, Hospitalization)
  Sender: FDA-Public Use
  Company Number: US-WYE-H06098808

PATIENT
  Sex: Male
  Weight: 106 kg

DRUGS (5)
  1. TORISEL [Suspect]
     Indication: RENAL CELL CARCINOMA
     Route: 042
     Dates: start: 20080731, end: 20080919
  2. LOMOTIL [Concomitant]
     Indication: DIARRHOEA
     Dosage: 2.5MG AS NEEDED
     Route: 048
  3. NEURONTIN [Concomitant]
     Indication: NEURALGIA
     Route: 048
  4. ENALAPRIL MALEATE [Concomitant]
     Indication: HYPERTENSION
     Route: 048
  5. CALCITRIOL [Concomitant]
     Indication: HYPOPARATHYROIDISM
     Route: 048

REACTIONS (2)
  - NO THERAPEUTIC RESPONSE [None]
  - RENAL FAILURE ACUTE [None]
